FAERS Safety Report 12397082 (Version 5)
Quarter: 2017Q2

REPORT INFORMATION
  Report Type: Spontaneous
  Country: US (occurrence: US)
  Receive Date: 20160524
  Receipt Date: 20170421
  Transmission Date: 20170830
  Serious: Yes (Other)
  Sender: FDA-Public Use
  Company Number: US-LUNDBECK-DKLU2013965

PATIENT
  Age: 7 Year
  Sex: Female

DRUGS (3)
  1. ONFI [Suspect]
     Active Substance: CLOBAZAM
     Indication: EPILEPSY
     Route: 065
     Dates: start: 2016
  2. LAMOTRIGINE. [Concomitant]
     Active Substance: LAMOTRIGINE
     Indication: PRODUCT USED FOR UNKNOWN INDICATION
     Route: 065
  3. ONFI [Suspect]
     Active Substance: CLOBAZAM
     Indication: FOCAL DYSCOGNITIVE SEIZURES
     Route: 065
     Dates: start: 20160623

REACTIONS (13)
  - Dehydration [Unknown]
  - Initial insomnia [Unknown]
  - Anxiety [Unknown]
  - Seizure cluster [Recovering/Resolving]
  - Abdominal pain upper [Unknown]
  - Dystonia [Unknown]
  - Breast disorder [Unknown]
  - Muscle twitching [Unknown]
  - Ear pain [Unknown]
  - Pyrexia [Unknown]
  - Gait disturbance [Unknown]
  - Otorrhoea [Unknown]
  - Headache [Unknown]

NARRATIVE: CASE EVENT DATE: 20160512
